FAERS Safety Report 8166693-0 (Version None)
Quarter: 2012Q1

REPORT INFORMATION
  Report Type: 
  Country: None (occurrence: None)
  Receive Date: 20120227
  Receipt Date: 20120215
  Transmission Date: 20120608
  Serious: No
  Sender: FDA-Public Use
  Company Number: US-B.I. PHARMACEUTICALS,INC./RIDGEFIELD-2012-BP-02973BP

PATIENT
  Sex: Male

DRUGS (3)
  1. ALLOPURINOL [Concomitant]
     Indication: GOUT
     Dosage: 300 MG
     Route: 048
     Dates: start: 20060101
  2. KEPPRA [Concomitant]
     Indication: CONVULSION
     Dosage: 500 MG
     Route: 048
     Dates: start: 20060101
  3. PRADAXA [Suspect]
     Indication: ATRIAL FIBRILLATION
     Dosage: 150 MG
     Route: 048
     Dates: start: 20111115, end: 20120208

REACTIONS (4)
  - HAEMATOCHEZIA [None]
  - FAECES DISCOLOURED [None]
  - COLONIC POLYP [None]
  - HAEMORRHOIDS [None]
